FAERS Safety Report 15043680 (Version 12)
Quarter: 2019Q2

REPORT INFORMATION
  Report Type: Spontaneous
  Country: CA (occurrence: CA)
  Receive Date: 20180621
  Receipt Date: 20190516
  Transmission Date: 20190711
  Serious: Yes (Hospitalization, Other)
  Sender: FDA-Public Use
  Company Number: CA-CELLTRION INC.-2018CA019880

PATIENT

DRUGS (16)
  1. INFLECTRA [Suspect]
     Active Substance: INFLIXIMAB-DYYB
     Dosage: 310 MG, EVERY 0, 2, 6 , THEN EVERY 8 WEEKS
     Route: 042
     Dates: start: 20180618, end: 20180618
  2. INFLECTRA [Suspect]
     Active Substance: INFLIXIMAB-DYYB
     Dosage: 310 MG, EVERY 0, 2, 6 , THEN EVERY 8 WEEKS
     Route: 042
  3. ASACOL [Concomitant]
     Active Substance: MESALAMINE
     Dosage: UNK
     Route: 048
  4. INFLECTRA [Suspect]
     Active Substance: INFLIXIMAB-DYYB
     Dosage: 310 MG, EVERY 0, 2, 6 , THEN EVERY 8 WEEKS
     Route: 042
     Dates: start: 20181204, end: 20181204
  5. INFLECTRA [Suspect]
     Active Substance: INFLIXIMAB-DYYB
     Dosage: 400 MG, EVERY 4 WEEKS
     Route: 042
     Dates: start: 20190225, end: 20190225
  6. PREDNISONE. [Concomitant]
     Active Substance: PREDNISONE
     Dosage: 40 MG, TAPERING DOSE
     Route: 048
     Dates: start: 2015, end: 20180418
  7. INFLECTRA [Suspect]
     Active Substance: INFLIXIMAB-DYYB
     Dosage: 310 MG, EVERY 0, 2, 6 , THEN EVERY 8 WEEKS
     Route: 042
     Dates: start: 20181009, end: 20181009
  8. INFLECTRA [Suspect]
     Active Substance: INFLIXIMAB-DYYB
     Dosage: 310 MG, EVERY 0, 2, 6 , THEN EVERY 8 WEEKS
     Route: 042
  9. INFLECTRA [Suspect]
     Active Substance: INFLIXIMAB-DYYB
     Dosage: 310 MG, EVERY 0, 2, 6 , THEN EVERY 8 WEEKS
     Route: 042
     Dates: start: 20180813, end: 20180813
  10. INFLECTRA [Suspect]
     Active Substance: INFLIXIMAB-DYYB
     Dosage: 400 MG, EVERY 4 WEEKS
     Route: 042
     Dates: start: 20190128
  11. INFLECTRA [Suspect]
     Active Substance: INFLIXIMAB-DYYB
     Indication: COLITIS ULCERATIVE
     Dosage: 310 MG, EVERY 0, 2, 6 , THEN EVERY 8 WEEKS
     Route: 042
     Dates: start: 20180314, end: 20180314
  12. INFLECTRA [Suspect]
     Active Substance: INFLIXIMAB-DYYB
     Dosage: 310 MG, EVERY 0, 2, 6 , THEN EVERY 8 WEEKS
     Route: 042
     Dates: start: 20180328, end: 20180328
  13. INFLECTRA [Suspect]
     Active Substance: INFLIXIMAB-DYYB
     Dosage: 310 MG, EVERY 0, 2, 6 , THEN EVERY 8 WEEKS
     Route: 042
     Dates: start: 20180423, end: 20180423
  14. INFLECTRA [Suspect]
     Active Substance: INFLIXIMAB-DYYB
     Dosage: 310 MG, EVERY 0, 2, 6 , THEN EVERY 8 WEEKS
     Route: 042
     Dates: start: 20181106, end: 20181106
  15. INFLECTRA [Suspect]
     Active Substance: INFLIXIMAB-DYYB
     Dosage: 400 MG, EVERY 0, 2, 6 , THEN EVERY 8 WEEKS
     Route: 042
     Dates: start: 20181231
  16. INFLECTRA [Suspect]
     Active Substance: INFLIXIMAB-DYYB
     Dosage: 400 MG, EVERY 4 WEEKS
     Route: 042
     Dates: start: 20190225, end: 20190225

REACTIONS (10)
  - Drug intolerance [Unknown]
  - Seasonal allergy [Not Recovered/Not Resolved]
  - Therapeutic product effect decreased [Unknown]
  - Product use issue [Unknown]
  - Haemorrhoids [Unknown]
  - Constipation [Not Recovered/Not Resolved]
  - Abdominal distension [Not Recovered/Not Resolved]
  - Off label use [Unknown]
  - Condition aggravated [Not Recovered/Not Resolved]
  - Arthralgia [Unknown]
